FAERS Safety Report 23585926 (Version 1)
Quarter: 2024Q1

REPORT INFORMATION
  Report Type: Spontaneous
  Country: JP (occurrence: JP)
  Receive Date: 20240301
  Receipt Date: 20240301
  Transmission Date: 20240410
  Serious: Yes (Other)
  Sender: FDA-Public Use
  Company Number: JP-HEXAL-SDZ2023JP067515AA

PATIENT
  Age: 84 Year
  Sex: Female
  Weight: 60.2 kg

DRUGS (3)
  1. OCTREOTIDE ACETATE [Suspect]
     Active Substance: OCTREOTIDE ACETATE
     Indication: Postprandial hypoglycaemia
     Dosage: UNK
     Route: 058
  2. OCTREOTIDE ACETATE [Suspect]
     Active Substance: OCTREOTIDE ACETATE
     Dosage: INITIATING A MONTHLY SUBCUTANEOUS INJECTION OF LONG-ACTING REPEATABLE OCTREOTIDE AT A DOSE OF 20 MG
     Route: 058
  3. OCTREOTIDE ACETATE [Suspect]
     Active Substance: OCTREOTIDE ACETATE

REACTIONS (2)
  - Cholangitis [Recovering/Resolving]
  - Cholecystitis [Recovering/Resolving]
